FAERS Safety Report 13431566 (Version 2)
Quarter: 2017Q3

REPORT INFORMATION
  Report Type: Spontaneous
  Country: US (occurrence: US)
  Receive Date: 20170412
  Receipt Date: 20170922
  Transmission Date: 20171127
  Serious: Yes (Hospitalization)
  Sender: FDA-Public Use
  Company Number: US-JNJFOC-20170403038

PATIENT
  Age: 75 Year
  Sex: Female
  Weight: 69.4 kg

DRUGS (2)
  1. XARELTO [Suspect]
     Active Substance: RIVAROXABAN
     Indication: PULMONARY EMBOLISM
     Dosage: 15MG PER ORAL TWICE A DAY FOR 19 DAYS AND THEN 20 MG PER ORAL WITH DINNER FOR 30 DAYS
     Route: 048
     Dates: start: 20151028, end: 20161016
  2. ASPIRIN. [Suspect]
     Active Substance: ASPIRIN
     Indication: PRODUCT USED FOR UNKNOWN INDICATION
     Route: 065
     Dates: end: 201610

REACTIONS (2)
  - Mallory-Weiss syndrome [Recovering/Resolving]
  - Inappropriate schedule of drug administration [Unknown]

NARRATIVE: CASE EVENT DATE: 20151028
